FAERS Safety Report 19410431 (Version 1)
Quarter: 2021Q2

REPORT INFORMATION
  Report Type: Spontaneous
  Country: US (occurrence: US)
  Receive Date: 20210612
  Receipt Date: 20210612
  Transmission Date: 20210717
  Serious: Yes (Disabling)
  Sender: FDA-Public Use
  Company Number: None

PATIENT
  Age: 57 Year
  Sex: Male
  Weight: 72 kg

DRUGS (1)
  1. PROPECIA [Suspect]
     Active Substance: FINASTERIDE
     Indication: HAIR DISORDER
     Route: 048
     Dates: start: 20130101, end: 20170205

REACTIONS (8)
  - Emotional disorder [None]
  - Sensory level abnormal [None]
  - Erectile dysfunction [None]
  - Thermal burn [None]
  - Nephrolithiasis [None]
  - Fear [None]
  - Blister [None]
  - Libido decreased [None]

NARRATIVE: CASE EVENT DATE: 20170205
